FAERS Safety Report 7255012-X (Version None)
Quarter: 2011Q1

REPORT INFORMATION
  Report Type: 
  Country: None (occurrence: None)
  Receive Date: 20110129
  Receipt Date: 20100201
  Transmission Date: 20110831
  Serious: No
  Sender: FDA-Public Use
  Company Number: US-ABBOTT-10P-163-0623935-00

PATIENT
  Sex: Female
  Weight: 70.37 kg

DRUGS (4)
  1. TACLONEX SCALP [Concomitant]
     Indication: PSORIASIS
  2. HUMIRA [Suspect]
     Indication: PSORIATIC ARTHROPATHY
     Dates: start: 20081001, end: 20081101
  3. AMMONIUM LACTATE CREAM; TOPICAL: EQ 12% BASE [Concomitant]
     Indication: PSORIASIS
  4. HUMIRA [Suspect]
     Indication: PSORIASIS
     Dates: start: 20071201

REACTIONS (6)
  - SKIN FISSURES [None]
  - PSORIASIS [None]
  - DRUG INEFFECTIVE [None]
  - FATIGUE [None]
  - ARTHRALGIA [None]
  - JOINT SWELLING [None]
